FAERS Safety Report 12847574 (Version 1)
Quarter: 2016Q4

REPORT INFORMATION
  Report Type: Spontaneous
  Country: US (occurrence: US)
  Receive Date: 20161013
  Receipt Date: 20161013
  Transmission Date: 20170207
  Serious: Yes (Disabling)
  Sender: FDA-Public Use
  Company Number: None

PATIENT
  Age: 47 Year
  Sex: Female
  Weight: 83.25 kg

DRUGS (8)
  1. SYNTHROID [Concomitant]
     Active Substance: LEVOTHYROXINE SODIUM
  2. LIOTHYRONINE [Concomitant]
     Active Substance: LIOTHYRONINE
  3. VITAMIN B12 [Concomitant]
     Active Substance: CYANOCOBALAMIN
  4. VITAMIN D3 [Concomitant]
     Active Substance: CHOLECALCIFEROL
  5. AVELOX [Suspect]
     Active Substance: MOXIFLOXACIN HYDROCHLORIDE
     Indication: STAPHYLOCOCCAL INFECTION
     Dosage: ?          QUANTITY:1 TABLET(S);?
     Route: 048
     Dates: start: 20141125, end: 20150317
  6. MAGNESIUM [Concomitant]
     Active Substance: MAGNESIUM
  7. AVELOX [Suspect]
     Active Substance: MOXIFLOXACIN HYDROCHLORIDE
     Indication: SINUSITIS
     Dosage: ?          QUANTITY:1 TABLET(S);?
     Route: 048
     Dates: start: 20141125, end: 20150317
  8. FISH OIL WITH GLUCOSAMINE + COLLAGEN [Concomitant]

REACTIONS (37)
  - Musculoskeletal disorder [None]
  - Sensory disturbance [None]
  - Headache [None]
  - Amnesia [None]
  - Dyspnoea [None]
  - Cardiovascular disorder [None]
  - Balance disorder [None]
  - Gastrooesophageal reflux disease [None]
  - Paraesthesia [None]
  - Dizziness [None]
  - Tendonitis [None]
  - Joint swelling [None]
  - Insomnia [None]
  - Flushing [None]
  - Abdominal pain upper [None]
  - Muscle rupture [None]
  - Nervous system disorder [None]
  - Muscle spasms [None]
  - Night sweats [None]
  - Chest pain [None]
  - Arthralgia [None]
  - Nausea [None]
  - Pain in extremity [None]
  - Malaise [None]
  - Gastrointestinal disorder [None]
  - Skin disorder [None]
  - Asthenia [None]
  - Arrhythmia [None]
  - Hyposmia [None]
  - Mobility decreased [None]
  - Hypoaesthesia [None]
  - Feeling abnormal [None]
  - Tremor [None]
  - Bursitis [None]
  - Neuralgia [None]
  - Tinnitus [None]
  - Dysgeusia [None]

NARRATIVE: CASE EVENT DATE: 20150401
